FAERS Safety Report 5066402-8 (Version None)
Quarter: 2006Q3

REPORT INFORMATION
  Report Type: 
  Country: None (occurrence: None)
  Receive Date: 20060801
  Receipt Date: 20060214
  Transmission Date: 20061208
  Serious: Yes (Other)
  Sender: FDA-Public Use
  Company Number: UG-GILEAD-2006-0009217

PATIENT
  Sex: Male

DRUGS (3)
  1. TENOFOVIR DISOPROXIL FUMARATE [Suspect]
     Indication: HIV INFECTION
  2. ZIDOVUDINE [Concomitant]
  3. LAMIVUDINE [Concomitant]

REACTIONS (4)
  - BRADYCARDIA [None]
  - DRUG TOXICITY [None]
  - GLOMERULONEPHRITIS [None]
  - NEPHRITIS [None]
